FAERS Safety Report 8839390 (Version 1)
Quarter: 2012Q4

REPORT INFORMATION
  Report Type: Spontaneous
  Country: US (occurrence: None)
  Receive Date: 20121012
  Receipt Date: 20121012
  Transmission Date: 20130627
  Serious: No
  Sender: FDA-Public Use
  Company Number: None

PATIENT

DRUGS (7)
  1. DOXYCYCLINE [Suspect]
     Route: 048
     Dates: start: 20120921, end: 20121006
  2. DOXYCYCLINE [Suspect]
     Route: 048
     Dates: start: 20120903, end: 20120916
  3. FLONASE [Concomitant]
  4. ZYRTEC [Concomitant]
  5. MULTIVITAMINS [Concomitant]
  6. VITAMIN D [Suspect]
  7. CALCIUM/MAGNESIUM SUPPLEMENTS [Concomitant]

REACTIONS (5)
  - Weight increased [None]
  - Muscular weakness [None]
  - Fatigue [None]
  - Bone pain [None]
  - Metabolic disorder [None]
